FAERS Safety Report 11057177 (Version 2)
Quarter: 2015Q2

REPORT INFORMATION
  Report Type: Spontaneous
  Country: US (occurrence: US)
  Receive Date: 20150422
  Receipt Date: 20150429
  Transmission Date: 20150821
  Serious: No
  Sender: FDA-Public Use
  Company Number: US-PFIZER INC-2015132855

PATIENT
  Sex: Female

DRUGS (1)
  1. PREMARIN [Suspect]
     Active Substance: ESTROGENS, CONJUGATED
     Dosage: UNK, WEEKLY

REACTIONS (4)
  - Heart rate abnormal [Unknown]
  - Hormone level abnormal [Unknown]
  - Heart rate increased [Unknown]
  - Incorrect product storage [Unknown]
